FAERS Safety Report 8232491-2 (Version None)
Quarter: 2012Q1

REPORT INFORMATION
  Report Type: 
  Country: None (occurrence: None)
  Receive Date: 20120323
  Receipt Date: 20120315
  Transmission Date: 20120608
  Serious: Yes (Hospitalization)
  Sender: FDA-Public Use
  Company Number: US-CELGENEUS-163-21880-12021271

PATIENT
  Sex: Male
  Weight: 95.45 kg

DRUGS (20)
  1. REVLIMID [Suspect]
     Dosage: 15 MILLIGRAM
     Route: 048
     Dates: start: 20110701
  2. VITAMIN D [Concomitant]
     Route: 065
  3. ZITHROMAX [Concomitant]
     Dosage: 500 MILLIGRAM
     Route: 065
  4. BACLOFEN [Concomitant]
     Dosage: 10 MILLIGRAM
     Route: 065
  5. DAPSONE [Concomitant]
     Dosage: 100 MILLIGRAM
     Route: 065
  6. GLUCOSAMINE AND CHONDROITIN [Concomitant]
     Route: 065
  7. MOUTH WASH [Concomitant]
     Route: 048
  8. PRILOSEC [Concomitant]
     Dosage: 1.5
     Route: 065
  9. VALTREX [Concomitant]
     Dosage: 1
     Route: 065
  10. SOTALOL HCL [Concomitant]
     Dosage: 120 MILLIGRAM
     Route: 065
  11. DOXYCYCLINE [Concomitant]
     Dosage: 10 MILLIGRAM
     Route: 065
  12. FLUIDS [Concomitant]
     Route: 041
     Dates: start: 20120201
  13. TRILEPTAL [Concomitant]
     Dosage: 150 MILLIGRAM
     Route: 065
  14. POTASSIUM [Concomitant]
     Route: 065
  15. LOMOTIL [Concomitant]
     Route: 065
  16. LYRICA [Concomitant]
     Dosage: 50 MILLIGRAM
     Route: 065
  17. REVLIMID [Suspect]
     Dosage: 10 MILLIGRAM
     Route: 048
     Dates: start: 20110203
  18. REVLIMID [Suspect]
     Dosage: 15-20MG
     Route: 048
     Dates: start: 20110401
  19. CENTRUM [Concomitant]
     Route: 065
  20. ASCORBIC ACID [Concomitant]
     Dosage: 500
     Route: 065

REACTIONS (1)
  - ATRIAL FIBRILLATION [None]
